FAERS Safety Report 10054354 (Version 1)
Quarter: 2014Q2

REPORT INFORMATION
  Report Type: Spontaneous
  Country: US (occurrence: US)
  Receive Date: 20140402
  Receipt Date: 20140402
  Transmission Date: 20141212
  Serious: No
  Sender: FDA-Public Use
  Company Number: US-AMGEN-USASP2014019319

PATIENT
  Age: 15 Year
  Sex: Male

DRUGS (3)
  1. ENBREL [Suspect]
     Indication: PSORIASIS
     Dosage: 50 MG, QWK USES 2 DOSE TRAYS ON SAME DAY
     Route: 065
     Dates: start: 20070702
  2. METHOTREXATE [Concomitant]
     Dosage: UNK
     Dates: end: 201302
  3. HUMIRA [Concomitant]
     Dosage: UNK
     Dates: end: 201304

REACTIONS (3)
  - Nausea [Recovered/Resolved]
  - Back pain [Not Recovered/Not Resolved]
  - Psoriasis [Unknown]
